FAERS Safety Report 9499796 (Version 4)
Quarter: 2013Q4

REPORT INFORMATION
  Report Type: Spontaneous
  Country: DE (occurrence: None)
  Receive Date: 20130903
  Receipt Date: 20131213
  Transmission Date: 20140711
  Serious: Yes (Hospitalization, Other)
  Sender: FDA-Public Use
  Company Number: 2013DE001385

PATIENT
  Age: 68 Year
  Sex: Male
  Weight: 65 kg

DRUGS (10)
  1. PONATINIB [Suspect]
     Indication: CHRONIC MYELOID LEUKAEMIA
     Route: 048
     Dates: start: 20110315, end: 20130227
  2. HYDROCHLOROTHIAZID (HYDROCHLOROTHIAZID) [Concomitant]
  3. CLOPIDOGREL (CLOPIDOGREL) [Concomitant]
  4. CARVEDIOL (CARVEDILOL) [Concomitant]
  5. L-THYROXIN (LEVOTHYROXINE SODIUM) [Concomitant]
  6. TORASEMIDE (TORASEMIDE) [Concomitant]
  7. PROCORALAN (LVABRADINE) [Concomitant]
  8. DIOVAN (VALSARTAN) [Concomitant]
  9. AMLODIPIN (AMLODIPINE BESILATE) [Concomitant]
  10. SPRYCEL (DASATINIB MONOHYDRATE) [Concomitant]

REACTIONS (20)
  - Renal failure acute [None]
  - Gastroenteritis norovirus [None]
  - Bradycardia [None]
  - Cardiovascular disorder [None]
  - Dehydration [None]
  - Haematochezia [None]
  - Blood pressure decreased [None]
  - Ascites [None]
  - Pleural effusion [None]
  - Diverticulitis [None]
  - QRS axis abnormal [None]
  - Bundle branch block right [None]
  - Bifascicular block [None]
  - Platelet count decreased [None]
  - Prerenal failure [None]
  - Cough [None]
  - Peripheral vascular disorder [None]
  - Hypothyroidism [None]
  - Anaemia [None]
  - Mean platelet volume decreased [None]
